FAERS Safety Report 20133794 (Version 1)
Quarter: 2021Q4

REPORT INFORMATION
  Report Type: Spontaneous
  Country: DE (occurrence: DE)
  Receive Date: 20211201
  Receipt Date: 20211201
  Transmission Date: 20220303
  Serious: Yes (Hospitalization, Other)
  Sender: FDA-Public Use
  Company Number: None

PATIENT
  Age: 73 Year
  Sex: Female
  Weight: 77 kg

DRUGS (2)
  1. PANTOPRAZOLE [Suspect]
     Active Substance: PANTOPRAZOLE
     Indication: Gastritis
     Dosage: 2 X TAEGLICH JE 40 MG?2 X DAILY 40 MG EACH
     Route: 048
     Dates: start: 20211007, end: 20211110
  2. OMEPRAZOLE [Suspect]
     Active Substance: OMEPRAZOLE
     Indication: Gastritis
     Dosage: 2 X TAEGLICH JE 40 MG?2 X DAILY 40 MG EACH
     Route: 048
     Dates: start: 20211007, end: 20211110

REACTIONS (2)
  - Hypertension [Unknown]
  - Arrhythmia [Recovered/Resolved]

NARRATIVE: CASE EVENT DATE: 20211015
